FAERS Safety Report 12867542 (Version 2)
Quarter: 2017Q1

REPORT INFORMATION
  Report Type: Spontaneous
  Country: FR (occurrence: FR)
  Receive Date: 20161020
  Receipt Date: 20170103
  Transmission Date: 20170428
  Serious: Yes (Other)
  Sender: FDA-Public Use
  Company Number: FR-PFIZER INC-2016484250

PATIENT
  Age: 71 Year
  Sex: Female
  Weight: 86 kg

DRUGS (6)
  1. INIPOMP [Suspect]
     Active Substance: PANTOPRAZOLE SODIUM
     Indication: HIATUS HERNIA
     Dosage: 1 DF, 1X/DAY
     Dates: start: 201612
  2. UTROGESTAN [Concomitant]
     Active Substance: PROGESTERONE
     Indication: MENOPAUSE
     Dosage: UNK
     Route: 048
     Dates: start: 1995
  3. INIPOMP [Suspect]
     Active Substance: PANTOPRAZOLE SODIUM
     Indication: OESOPHAGEAL ULCER
  4. INIPOMP [Suspect]
     Active Substance: PANTOPRAZOLE SODIUM
     Indication: GASTROOESOPHAGEAL REFLUX DISEASE
     Dosage: 40 MG, QD
     Route: 048
     Dates: start: 2005, end: 201609
  5. LIORESAL [Suspect]
     Active Substance: BACLOFEN
     Indication: MUSCLE CONTRACTURE
     Dosage: 10 MG, QD
     Route: 048
     Dates: start: 2003, end: 201609
  6. ESTREVA [Concomitant]
     Active Substance: ESTRADIOL
     Indication: MENOPAUSE
     Dosage: UNK
     Route: 003
     Dates: start: 1995

REACTIONS (6)
  - Nausea [Recovering/Resolving]
  - Vision blurred [Recovering/Resolving]
  - Confusional state [Recovered/Resolved]
  - Binocular eye movement disorder [Recovering/Resolving]
  - Depressed level of consciousness [Recovering/Resolving]
  - Dizziness [Recovering/Resolving]

NARRATIVE: CASE EVENT DATE: 201609
